FAERS Safety Report 23584918 (Version 1)
Quarter: 2024Q1

REPORT INFORMATION
  Report Type: Spontaneous
  Country: US (occurrence: US)
  Receive Date: 20240301
  Receipt Date: 20240301
  Transmission Date: 20240410
  Serious: No
  Sender: FDA-Public Use
  Company Number: US-CIPLA LTD.-2023US07099

PATIENT

DRUGS (1)
  1. PREGABALIN [Suspect]
     Active Substance: PREGABALIN
     Indication: Pain
     Dosage: UNK
     Route: 065
     Dates: start: 20231020, end: 2023

REACTIONS (4)
  - Myalgia [Unknown]
  - Treatment noncompliance [Unknown]
  - Nervousness [Unknown]
  - Muscle spasms [Not Recovered/Not Resolved]
